FAERS Safety Report 10732977 (Version 2)
Quarter: 2015Q1

REPORT INFORMATION
  Report Type: Report from Study
  Country: GB (occurrence: GB)
  Receive Date: 20150123
  Receipt Date: 20150219
  Transmission Date: 20150721
  Serious: Yes (Hospitalization)
  Sender: FDA-Public Use
  Company Number: PHHO2015GB001237

PATIENT
  Age: 62 Year
  Sex: Female
  Weight: 81.5 kg

DRUGS (4)
  1. METFORMIN [Concomitant]
     Active Substance: METFORMIN HYDROCHLORIDE
     Indication: BLOOD GLUCOSE INCREASED
     Dosage: UNK
     Route: 065
     Dates: start: 20140318
  2. AFINITOR [Suspect]
     Active Substance: EVEROLIMUS
     Indication: BREAST CANCER
     Dosage: 5 MG, QD
     Route: 048
     Dates: start: 20130924
  3. OMEPRAZOLE. [Concomitant]
     Active Substance: OMEPRAZOLE
     Indication: DYSPEPSIA
     Dosage: UNK
     Route: 065
     Dates: start: 20130730
  4. THYROXINE [Concomitant]
     Active Substance: LEVOTHYROXINE
     Indication: HYPOTHYROIDISM
     Dosage: UNK
     Route: 065
     Dates: start: 1993

REACTIONS (1)
  - Pericardial effusion [Recovered/Resolved]

NARRATIVE: CASE EVENT DATE: 20141113
